FAERS Safety Report 4636409-0 (Version None)
Quarter: 2005Q2

REPORT INFORMATION
  Report Type: 
  Country: None (occurrence: None)
  Receive Date: 20050415
  Receipt Date: 20050308
  Transmission Date: 20051028
  Serious: Yes (Other)
  Sender: FDA-Public Use
  Company Number: JP-ROCHE-398486

PATIENT
  Age: 9 Year
  Sex: Male

DRUGS (4)
  1. TAMIFLU [Suspect]
     Route: 048
     Dates: start: 20050307, end: 20050307
  2. TOMIRON [Concomitant]
     Route: 048
     Dates: start: 20050307
  3. MIYA BM [Concomitant]
     Route: 048
     Dates: start: 20050307
  4. MUCODYNE [Concomitant]
     Route: 048
     Dates: start: 20050307

REACTIONS (3)
  - HALLUCINATION [None]
  - PANIC DISORDER [None]
  - RESTLESSNESS [None]
